FAERS Safety Report 25385152 (Version 2)
Quarter: 2025Q2

REPORT INFORMATION
  Report Type: Spontaneous
  Country: US (occurrence: US)
  Receive Date: 20250602
  Receipt Date: 20250610
  Transmission Date: 20250717
  Serious: Yes (Other)
  Sender: VERTEX
  Company Number: US-VERTEX PHARMACEUTICALS-2025-008964

PATIENT

DRUGS (3)
  1. CASGEVY [Suspect]
     Active Substance: EXAGAMGLOGENE AUTOTEMCEL
     Indication: Sickle cell disease
     Route: 042
  2. MOTIXAFORTIDE [Concomitant]
     Active Substance: MOTIXAFORTIDE
     Indication: Product used for unknown indication
     Route: 065
     Dates: start: 20250506, end: 20250506
  3. PLERIXAFOR [Concomitant]
     Active Substance: PLERIXAFOR
     Dates: start: 20250507

REACTIONS (3)
  - Heart rate increased [Recovered/Resolved]
  - Flushing [Recovered/Resolved]
  - Urticaria [Recovered/Resolved]

NARRATIVE: CASE EVENT DATE: 20250506
